FAERS Safety Report 8016973-4 (Version None)
Quarter: 2012Q1

REPORT INFORMATION
  Report Type: 
  Country: None (occurrence: None)
  Receive Date: 20120102
  Receipt Date: 20111227
  Transmission Date: 20120608
  Serious: Yes (Other)
  Sender: FDA-Public Use
  Company Number: PHEH2010US00483

PATIENT
  Sex: Female

DRUGS (23)
  1. PERCOCET [Concomitant]
  2. PRILOSEC [Concomitant]
     Dosage: 20 MG, QD
  3. WARFARIN SODIUM [Concomitant]
     Dosage: 2.5 MG, QD
  4. DEMEROL [Concomitant]
  5. FEMARA [Concomitant]
  6. HYDROCORTISONE [Concomitant]
  7. FASLODEX [Concomitant]
  8. ASPIRIN [Concomitant]
  9. AMBIEN [Concomitant]
  10. FULVESTRANT [Concomitant]
  11. LANTUS [Concomitant]
  12. REGLAN [Concomitant]
  13. FISH OIL [Concomitant]
  14. MINOCYCLINE HCL [Concomitant]
     Dosage: 100 MG, BID
     Route: 048
  15. MORPHINE [Concomitant]
  16. LISINOPRIL [Concomitant]
  17. LOPRESSOR [Concomitant]
  18. ATIVAN [Concomitant]
  19. METFORMIN HCL [Concomitant]
  20. ONDANSETRON [Concomitant]
  21. COUMADIN [Suspect]
     Dosage: 1.25 MG, QD
     Route: 048
  22. ZOMETA [Suspect]
  23. IBUPROFEN [Concomitant]

REACTIONS (22)
  - GENERAL PHYSICAL HEALTH DETERIORATION [None]
  - SPINAL OSTEOARTHRITIS [None]
  - SINUS DISORDER [None]
  - MUSCULOSKELETAL DISCOMFORT [None]
  - OSTEONECROSIS OF JAW [None]
  - DECREASED INTEREST [None]
  - DIABETES MELLITUS [None]
  - OSTEOMYELITIS [None]
  - PAIN [None]
  - ANXIETY [None]
  - HYPERTENSION [None]
  - DIZZINESS [None]
  - PROTHROMBIN TIME PROLONGED [None]
  - LUNG NEOPLASM [None]
  - AXILLARY MASS [None]
  - COMPRESSION FRACTURE [None]
  - IMPAIRED HEALING [None]
  - TOOTHACHE [None]
  - METASTASES TO BONE [None]
  - BREAST CANCER METASTATIC [None]
  - SUBCUTANEOUS ABSCESS [None]
  - DYSPHONIA [None]
